FAERS Safety Report 6538104-X (Version None)
Quarter: 2010Q1

REPORT INFORMATION
  Report Type: 
  Country: None (occurrence: None)
  Receive Date: 20100114
  Receipt Date: 20100108
  Transmission Date: 20100710
  Serious: Yes (Hospitalization)
  Sender: FDA-Public Use
  Company Number: FR-ROCHE-674522

PATIENT
  Sex: Female

DRUGS (9)
  1. TAMIFLU [Suspect]
     Dosage: DOSE= 75 MG
     Route: 048
     Dates: start: 20091211
  2. JOSACINE [Suspect]
     Indication: DRUG USE FOR UNKNOWN INDICATION
     Route: 048
     Dates: start: 20091211, end: 20091212
  3. DAFALGAN [Suspect]
     Indication: HYPERTHERMIA
     Dosage: DOSE= 500 MG
     Route: 048
     Dates: start: 20091211
  4. ECAZIDE [Concomitant]
     Dosage: DOSE= 1 IN THE MORNING
     Route: 048
  5. FENOFIBRATE [Concomitant]
     Dosage: DOSE= 67 MG ONCE IN THE MORNING
     Route: 048
  6. CONTRAMAL [Concomitant]
     Dosage: DOSE= 1 TABLET TWICE DAILY
     Route: 048
  7. ACTAEA RACEMOSA [Concomitant]
     Dosage: DOSE= 3 X 3/DAY
  8. NASONEX [Concomitant]
  9. BECOTIDE [Concomitant]
     Route: 055

REACTIONS (3)
  - BURNING SENSATION [None]
  - DERMATITIS BULLOUS [None]
  - ERYTHEMA [None]
